FAERS Safety Report 11051595 (Version 1)
Quarter: 2015Q2

REPORT INFORMATION
  Report Type: Spontaneous
  Country: US (occurrence: None)
  Receive Date: 20150420
  Receipt Date: 20150420
  Transmission Date: 20150821
  Serious: Yes (Hospitalization)
  Sender: FDA-Public Use
  Company Number: None

PATIENT
  Age: 70 Year
  Sex: Male
  Weight: 83.9 kg

DRUGS (1)
  1. WARFARIN [Suspect]
     Active Substance: WARFARIN
     Indication: ATRIAL FIBRILLATION
     Dosage: 5 MG  UD  PO
     Route: 048
     Dates: start: 20141010, end: 20150206

REACTIONS (6)
  - Faeces discoloured [None]
  - International normalised ratio increased [None]
  - Dizziness [None]
  - Haemoglobin decreased [None]
  - Haematocrit decreased [None]
  - Extra dose administered [None]

NARRATIVE: CASE EVENT DATE: 20150206
